FAERS Safety Report 18640653 (Version 1)
Quarter: 2020Q4

REPORT INFORMATION
  Report Type: Spontaneous
  Country: DK (occurrence: DK)
  Receive Date: 20201221
  Receipt Date: 20201221
  Transmission Date: 20210114
  Serious: Yes (Hospitalization, Other)
  Sender: FDA-Public Use
  Company Number: DK-LUPIN PHARMACEUTICALS INC.-2020-10481

PATIENT
  Sex: Female

DRUGS (7)
  1. IBUPROFEN. [Suspect]
     Active Substance: IBUPROFEN
     Indication: PRODUCT USED FOR UNKNOWN INDICATION
     Dosage: UNK
     Route: 065
  2. ENOXAPARIN [Suspect]
     Active Substance: ENOXAPARIN
     Indication: PRODUCT USED FOR UNKNOWN INDICATION
     Dosage: UNK
     Route: 065
  3. CETIRIZINE HYDROCHLORIDE. [Suspect]
     Active Substance: CETIRIZINE HYDROCHLORIDE
     Indication: PRODUCT USED FOR UNKNOWN INDICATION
     Dosage: UNK
     Route: 065
  4. PARACETAMOL [Suspect]
     Active Substance: ACETAMINOPHEN
     Indication: PRODUCT USED FOR UNKNOWN INDICATION
     Dosage: UNK
     Route: 065
  5. WARFARIN [Suspect]
     Active Substance: WARFARIN
     Indication: HYPERCOAGULATION
     Dosage: UNK
     Route: 065
  6. BUTALBITAL [Suspect]
     Active Substance: BUTALBITAL
     Indication: PRODUCT USED FOR UNKNOWN INDICATION
     Dosage: UNK
     Route: 065
  7. ETHINYLESTRADIOL;ETONOGESTREL [Suspect]
     Active Substance: ETHINYL ESTRADIOL\ETONOGESTREL
     Indication: PRODUCT USED FOR UNKNOWN INDICATION
     Dosage: UNK
     Route: 065

REACTIONS (12)
  - Migraine [Unknown]
  - Breast cyst [Unknown]
  - Pain [Unknown]
  - Iron deficiency anaemia [Unknown]
  - Hypersensitivity [Unknown]
  - Hypercoagulation [Unknown]
  - Abortion induced [Unknown]
  - Thrombocytopenia [Unknown]
  - Ventricular hypokinesia [Unknown]
  - Gastrooesophageal reflux disease [Unknown]
  - Dyspnoea [Unknown]
  - Exposure during pregnancy [Unknown]
